FAERS Safety Report 25504556 (Version 1)
Quarter: 2025Q3

REPORT INFORMATION
  Report Type: Spontaneous
  Country: US (occurrence: None)
  Receive Date: 20250701
  Receipt Date: 20250701
  Transmission Date: 20251021
  Serious: Yes (Death)
  Sender: FDA-CTU
  Company Number: None

PATIENT
  Age: 94 Year
  Sex: Male
  Weight: 63 kg

DRUGS (21)
  1. GAMUNEX-C [Suspect]
     Active Substance: HUMAN IMMUNOGLOBULIN G
     Indication: Hypogammaglobulinaemia
     Route: 041
     Dates: start: 20250630, end: 20250630
  2. AMLODIPINE [Concomitant]
     Active Substance: AMLODIPINE BESYLATE
     Dates: start: 20220701
  3. Azelastine Nasal 0.1% [Concomitant]
     Dates: start: 20220701
  4. Dexamethasone Sodium Phosphate 4mg/ml [Concomitant]
     Dates: start: 20220701
  5. Fludrocortisone Acetate 0.1mg [Concomitant]
     Dates: start: 20220701
  6. Hydrocortisone oral 10mg [Concomitant]
     Dates: start: 20220701
  7. Ipratropium Bromide Nasal 0.06% [Concomitant]
     Dates: start: 20220701
  8. LEVOTHYROXINE [Concomitant]
     Active Substance: LEVOTHYROXINE
     Dates: start: 20220701
  9. MONTELUKAST SODIUM [Concomitant]
     Active Substance: MONTELUKAST SODIUM
     Dates: start: 20220701
  10. PREDNISONE [Concomitant]
     Active Substance: PREDNISONE
     Dates: start: 20220701
  11. ProAir HFA 108mcg [Concomitant]
     Dates: start: 20220701
  12. TAMSULOSIN [Concomitant]
     Active Substance: TAMSULOSIN
     Dates: start: 20220701
  13. MEMANTINE [Concomitant]
     Active Substance: MEMANTINE
     Dates: start: 20241021
  14. SERTRALINE [Concomitant]
     Active Substance: SERTRALINE HYDROCHLORIDE
     Dates: start: 20241021
  15. Acetaminophen 650mg [Concomitant]
     Dates: start: 20241002
  16. DIPHENHYDRAMINE [Concomitant]
     Active Substance: DIPHENHYDRAMINE
     Dates: start: 20241002
  17. Sodium Chloride 0.9% 500mL [Concomitant]
     Dates: start: 20241002
  18. Sodium Chloride 0.9% 10mL (flushes) [Concomitant]
     Dates: start: 20241002
  19. Adrenalin 1mg (0.3mg dose) (anakit) [Concomitant]
     Dates: start: 20241002
  20. Diphenhydramine 50mg/ml (anakit) [Concomitant]
     Dates: start: 20241002
  21. Sodium Chloride 0.9% 500mL (anakit) [Concomitant]
     Dates: start: 20241002

REACTIONS (1)
  - Death [None]

NARRATIVE: CASE EVENT DATE: 20250630
